FAERS Safety Report 4313318-8 (Version None)
Quarter: 2004Q1

REPORT INFORMATION
  Report Type: 
  Country: None (occurrence: None)
  Receive Date: 20040304
  Receipt Date: 20040221
  Transmission Date: 20041129
  Serious: Yes (Disabling, Other)
  Sender: FDA-Public Use
  Company Number: 2003125082

PATIENT
  Age: 63 Year
  Sex: Male
  Weight: 74.8435 kg

DRUGS (6)
  1. MINIPRESS [Suspect]
     Indication: HYPERTENSION
     Dosage: 5 MG (DAILY), ORAL
     Route: 048
  2. ACEBUTOL HYDROCHLORIDE [Concomitant]
  3. OMEPRAZOLE [Concomitant]
  4. OXYCODONE HCL [Concomitant]
  5. OXYCOCET (PARACETAMOL, OXYCODONE HYDROCHLORIDE) [Concomitant]
  6. TYLENOL PM (DIPHENHYDRAMINE, PARACETAMOL) [Concomitant]

REACTIONS (5)
  - AGITATION [None]
  - DISORIENTATION [None]
  - INSOMNIA [None]
  - PALPITATIONS [None]
  - PARANOIA [None]
